FAERS Safety Report 17240809 (Version 1)
Quarter: 2020Q1

REPORT INFORMATION
  Report Type: Spontaneous
  Country: US (occurrence: US)
  Receive Date: 20200107
  Receipt Date: 20200107
  Transmission Date: 20200409
  Serious: No
  Sender: FDA-Public Use
  Company Number: US-GLAXOSMITHKLINE-US2020001746

PATIENT
  Age: 30 Year
  Sex: Male

DRUGS (1)
  1. FLONASE SENSIMIST ALLERGY RELIEF [Suspect]
     Active Substance: FLUTICASONE FUROATE
     Indication: NASOPHARYNGITIS
     Dosage: 3 TIMES IN EACH NOSE
     Dates: start: 20200102, end: 20200102

REACTIONS (3)
  - Epistaxis [Recovered/Resolved]
  - Adverse drug reaction [Recovered/Resolved]
  - Extra dose administered [Unknown]

NARRATIVE: CASE EVENT DATE: 20200103
